FAERS Safety Report 17336913 (Version 4)
Quarter: 2021Q1

REPORT INFORMATION
  Report Type: Spontaneous
  Country: US (occurrence: US)
  Receive Date: 20200128
  Receipt Date: 20210318
  Transmission Date: 20210419
  Serious: No
  Sender: FDA-Public Use
  Company Number: US-PFIZER INC-2019457488

PATIENT
  Age: 76 Year
  Sex: Male
  Weight: 79.83 kg

DRUGS (4)
  1. LYRICA [Suspect]
     Active Substance: PREGABALIN
     Indication: BURNING SENSATION
     Dosage: 200 MG, 3X/DAY (1 CAP 3 TIMES A DAY FOR 90 DAYS)
     Route: 048
  2. LYRICA [Suspect]
     Active Substance: PREGABALIN
     Indication: POLYNEUROPATHY IDIOPATHIC PROGRESSIVE
     Dosage: 150 MG, 2X/DAY [1 CAPSULE BY MOUTH TWICE DAILY (6AM AND AT MIDNIGHT)]
     Route: 048
  3. LYRICA [Suspect]
     Active Substance: PREGABALIN
     Indication: PAIN IN EXTREMITY
     Dosage: 150 MG, 2X/DAY (1 PILL IN THE MORNING AND 1 IN THE EVENING)
  4. HYDROCODONE [Concomitant]
     Active Substance: HYDROCODONE
     Indication: BACK PAIN
     Dosage: 1 DF, 2X/DAY [7.5MG/325MG, 1 TABLET BY MOUTH TWICE DAILY]
     Route: 048

REACTIONS (4)
  - Insomnia [Unknown]
  - Off label use [Unknown]
  - Drug ineffective for unapproved indication [Unknown]
  - Pain [Unknown]
